FAERS Safety Report 23885803 (Version 1)
Quarter: 2024Q2

REPORT INFORMATION
  Report Type: Spontaneous
  Country: US (occurrence: US)
  Receive Date: 20240522
  Receipt Date: 20240522
  Transmission Date: 20240716
  Serious: No
  Sender: FDA-Public Use
  Company Number: US-BIOGEN-2024BI01265197

PATIENT
  Age: 25 Year

DRUGS (1)
  1. SPINRAZA [Suspect]
     Active Substance: NUSINERSEN
     Indication: Product used for unknown indication
     Route: 050
     Dates: start: 20240125

REACTIONS (3)
  - Shoulder fracture [Unknown]
  - Clavicle fracture [Unknown]
  - Joint injury [Unknown]

NARRATIVE: CASE EVENT DATE: 20240510
